FAERS Safety Report 25165538 (Version 1)
Quarter: 2025Q2

REPORT INFORMATION
  Report Type: Spontaneous
  Country: US (occurrence: US)
  Receive Date: 20250407
  Receipt Date: 20250407
  Transmission Date: 20250717
  Serious: Yes (Life-Threatening, Other)
  Sender: TWI PHARMACEUTICALS
  Company Number: US-TWI PHARMACEUTICAL, INC-20250300714

PATIENT
  Age: 32 Year
  Sex: Female

DRUGS (4)
  1. BUPROPION HYDROCHLORIDE XL [Suspect]
     Active Substance: BUPROPION HYDROCHLORIDE
     Indication: Depression
     Route: 065
  2. BUPROPION HYDROCHLORIDE XL [Suspect]
     Active Substance: BUPROPION HYDROCHLORIDE
     Indication: Anxiety
  3. PROPRANOLOL [Suspect]
     Active Substance: PROPRANOLOL HYDROCHLORIDE
     Indication: Depression
     Route: 065
  4. PROPRANOLOL [Suspect]
     Active Substance: PROPRANOLOL HYDROCHLORIDE
     Indication: Anxiety

REACTIONS (5)
  - Cardiogenic shock [Unknown]
  - Respiratory failure [Unknown]
  - Cardiac arrest [Recovering/Resolving]
  - Overdose [Unknown]
  - Toxicity to various agents [Unknown]
